FAERS Safety Report 9074817 (Version 1)
Quarter: 2013Q1

REPORT INFORMATION
  Report Type: Spontaneous
  Country: US (occurrence: US)
  Receive Date: 20130129
  Receipt Date: 20130129
  Transmission Date: 20140127
  Serious: No
  Sender: FDA-Public Use
  Company Number: US-ABBOTT-12P-163-0997680-00

PATIENT
  Sex: Female

DRUGS (2)
  1. LUPRON DEPOT [Suspect]
     Indication: BREAST CANCER
     Dates: start: 201207, end: 201209
  2. LUPRON DEPOT [Suspect]
     Indication: BREAST CANCER
     Dates: start: 201210

REACTIONS (1)
  - Off label use [Not Recovered/Not Resolved]
